FAERS Safety Report 8367437-X (Version None)
Quarter: 2012Q2

REPORT INFORMATION
  Report Type: 
  Country: None (occurrence: None)
  Receive Date: 20120517
  Receipt Date: 20120130
  Transmission Date: 20120825
  Serious: No
  Sender: FDA-Public Use
  Company Number: US-GLAXOSMITHKLINE-A0963761A

PATIENT
  Age: 57 Year
  Sex: Male

DRUGS (3)
  1. SYNTHROID [Concomitant]
  2. VOTRIENT [Suspect]
     Indication: THYROID CANCER
     Dosage: 800MG PER DAY
     Route: 048
     Dates: start: 20111211
  3. PREVACID [Concomitant]

REACTIONS (2)
  - BACK PAIN [None]
  - DIARRHOEA [None]
